FAERS Safety Report 4625023-9 (Version None)
Quarter: 2005Q1

REPORT INFORMATION
  Report Type: 
  Country: None (occurrence: None)
  Receive Date: 20050325
  Receipt Date: 20050118
  Transmission Date: 20050727
  Serious: No
  Sender: FDA-Public Use
  Company Number: US_0502112124

PATIENT
  Sex: Female

DRUGS (1)
  1. FORTEO [Suspect]
     Indication: BONE DENSITY DECREASED

REACTIONS (5)
  - ASTHENIA [None]
  - DIARRHOEA [None]
  - FATIGUE [None]
  - FEELING ABNORMAL [None]
  - NAUSEA [None]
